FAERS Safety Report 17426011 (Version 1)
Quarter: 2020Q1

REPORT INFORMATION
  Report Type: Spontaneous
  Country: US (occurrence: US)
  Receive Date: 20200217
  Receipt Date: 20200217
  Transmission Date: 20200409
  Serious: No
  Sender: FDA-Public Use
  Company Number: US-AMGEN-USASP2020026144

PATIENT
  Sex: Female

DRUGS (1)
  1. AIMOVIG [Suspect]
     Active Substance: ERENUMAB-AOOE
     Indication: MIGRAINE
     Dosage: UNK
     Route: 065

REACTIONS (6)
  - Abdominal distension [Unknown]
  - Nausea [Unknown]
  - Mood altered [Unknown]
  - Breast tenderness [Unknown]
  - Muscle twitching [Recovered/Resolved]
  - Abdominal pain [Unknown]
